FAERS Safety Report 14018389 (Version 1)
Quarter: 2017Q3

REPORT INFORMATION
  Report Type: Spontaneous
  Country: US (occurrence: US)
  Receive Date: 20170927
  Receipt Date: 20170927
  Transmission Date: 20171128
  Serious: Yes (Other)
  Sender: FDA-Public Use
  Company Number: None

PATIENT
  Age: 41 Year
  Sex: Female
  Weight: 91.35 kg

DRUGS (3)
  1. VITAMIN D [Concomitant]
     Active Substance: CHOLECALCIFEROL
  2. PRAVASTIAN 40MG [Suspect]
     Active Substance: PRAVASTATIN
     Indication: BLOOD CHOLESTEROL
     Dosage: ?          QUANTITY:90 CAPSULE(S);?
     Dates: start: 20170816, end: 20170927
  3. LEVOTHROXINE [Concomitant]
     Active Substance: LEVOTHYROXINE

REACTIONS (5)
  - Musculoskeletal disorder [None]
  - Palpitations [None]
  - Hypoaesthesia [None]
  - Chest pain [None]
  - Pain in extremity [None]

NARRATIVE: CASE EVENT DATE: 20170923
